FAERS Safety Report 4823873-7 (Version None)
Quarter: 2005Q4

REPORT INFORMATION
  Report Type: 
  Country: None (occurrence: None)
  Receive Date: 20051107
  Receipt Date: 20051024
  Transmission Date: 20060501
  Serious: Yes (Life-Threatening, Disabling, Other)
  Sender: FDA-Public Use
  Company Number: 2005093353

PATIENT
  Age: 59 Year
  Sex: Female
  Weight: 74.8435 kg

DRUGS (7)
  1. CLEOCIN HCL [Suspect]
     Indication: SIALOADENITIS
     Dosage: 900 MCG/KG (1 IN 3 D), ORAL
     Route: 048
     Dates: start: 20050601
  2. ACIDOPHILUS (LACTOBACILLUS ACIDOPHILUS) [Concomitant]
  3. METAMUCIL ^SEARLE^ (PSYLLIUM HYDROPHILIC MUCILLOID) [Concomitant]
  4. TAMOXIFEN CITRATE [Concomitant]
  5. EFFEXOR [Concomitant]
  6. AMBIEN [Concomitant]
  7. ACETYLSALICYLIC ACID SRT [Concomitant]

REACTIONS (3)
  - DIARRHOEA [None]
  - OVARIAN CANCER [None]
  - VOMITING [None]
